FAERS Safety Report 18280337 (Version 2)
Quarter: 2021Q3

REPORT INFORMATION
  Report Type: Spontaneous
  Country: US (occurrence: US)
  Receive Date: 20200917
  Receipt Date: 20210702
  Transmission Date: 20211014
  Serious: Yes (Other)
  Sender: FDA-Public Use
  Company Number: US-PFIZER INC-2019447605

PATIENT
  Age: 70 Year
  Sex: Female
  Weight: 65.77 kg

DRUGS (4)
  1. LYRICA [Suspect]
     Active Substance: PREGABALIN
     Dosage: 350 MG, DAILY (LYRICA 150 MG BID (TWICE A DAY) PLUS LYRICA 50 MG Q AM (EVERY MORNING))
     Route: 048
  2. LYRICA [Suspect]
     Active Substance: PREGABALIN
     Indication: NEUROPATHY PERIPHERAL
     Dosage: UNK (TAKING 150 PLUS 50 IN THE MORNING AND 150 AT NIGHT)
     Route: 048
  3. LYRICA [Suspect]
     Active Substance: PREGABALIN
     Dosage: 150 MG, 2X/DAY (TAKE 1 CAPSULE BY MOUTH TWICE A DAY)
     Route: 048
  4. OLMESARTAN [Concomitant]
     Active Substance: OLMESARTAN
     Indication: HYPERTENSION
     Dosage: 40 MG, 1X/DAY

REACTIONS (6)
  - Pain in extremity [Unknown]
  - Drug dependence [Unknown]
  - Panic reaction [Unknown]
  - Frustration tolerance decreased [Unknown]
  - Drug intolerance [Unknown]
  - Tearfulness [Unknown]
